FAERS Safety Report 12867104 (Version 1)
Quarter: 2016Q4

REPORT INFORMATION
  Report Type: Spontaneous
  Country: US (occurrence: US)
  Receive Date: 20161020
  Receipt Date: 20161020
  Transmission Date: 20170207
  Serious: No
  Sender: FDA-Public Use
  Company Number: US-JAZZ-2016-US-014896

PATIENT
  Age: 41 Year
  Sex: Female

DRUGS (34)
  1. BYSTOLIC [Concomitant]
     Active Substance: NEBIVOLOL HYDROCHLORIDE
  2. ALIGN [Concomitant]
     Active Substance: BIFIDOBACTERIUM LONGUM SUBSP. INFANTIS
  3. DEXILANT [Concomitant]
     Active Substance: DEXLANSOPRAZOLE
  4. NORCO [Concomitant]
     Active Substance: ACETAMINOPHEN\HYDROCODONE BITARTRATE
  5. PRISTIQ EXTENDED-RELEASE [Concomitant]
     Active Substance: DESVENLAFAXINE SUCCINATE
  6. XYREM [Suspect]
     Active Substance: SODIUM OXYBATE
     Indication: CATAPLEXY
     Dosage: DOSE ADJUSTMENTS
     Dates: start: 201202, end: 201408
  7. XYREM [Suspect]
     Active Substance: SODIUM OXYBATE
     Dosage: 4.5 G, BID
     Route: 048
     Dates: start: 201408
  8. HYDROXYZINE HCL [Concomitant]
     Active Substance: HYDROXYZINE HYDROCHLORIDE
  9. TRAMADOL HCL [Concomitant]
     Active Substance: TRAMADOL HYDROCHLORIDE
  10. TRIAMCINOLONE [Concomitant]
     Active Substance: TRIAMCINOLONE
  11. XARELTO [Concomitant]
     Active Substance: RIVAROXABAN
  12. IRON [Concomitant]
     Active Substance: IRON
  13. GINGER. [Concomitant]
     Active Substance: GINGER
  14. BACLOFEN. [Concomitant]
     Active Substance: BACLOFEN
  15. PAIN [Concomitant]
     Active Substance: UNSPECIFIED INGREDIENT
  16. COUMADIN [Concomitant]
     Active Substance: WARFARIN SODIUM
  17. CLINDAMYCIN HCL [Concomitant]
     Active Substance: CLINDAMYCIN HYDROCHLORIDE
  18. CLONAZEPAM. [Concomitant]
     Active Substance: CLONAZEPAM
  19. BIOTIN [Concomitant]
     Active Substance: BIOTIN
  20. TURMERIC [Concomitant]
     Active Substance: TURMERIC
  21. NUVIGIL [Concomitant]
     Active Substance: ARMODAFINIL
  22. RITALIN [Concomitant]
     Active Substance: METHYLPHENIDATE HYDROCHLORIDE
  23. ADVIL [Concomitant]
     Active Substance: IBUPROFEN
  24. CINNAMON. [Concomitant]
     Active Substance: CINNAMON
  25. GABAPENTIN. [Concomitant]
     Active Substance: GABAPENTIN
  26. LOMOTIL [Concomitant]
     Active Substance: ATROPINE SULFATE\DIPHENOXYLATE HYDROCHLORIDE
  27. TECFIDERA [Concomitant]
     Active Substance: DIMETHYL FUMARATE
  28. MILK THISTLE [Concomitant]
     Active Substance: MILK THISTLE
  29. XYREM [Suspect]
     Active Substance: SODIUM OXYBATE
     Indication: NARCOLEPSY
     Dosage: 2.25 G, BID
     Route: 048
     Dates: start: 201202, end: 201202
  30. MAGNESIUM OXIDE. [Concomitant]
     Active Substance: MAGNESIUM OXIDE
  31. TYLENOL [Concomitant]
     Active Substance: ACETAMINOPHEN
  32. AMOXICILLIN. [Concomitant]
     Active Substance: AMOXICILLIN
  33. BETASERON [Concomitant]
     Active Substance: INTERFERON BETA-1B
  34. DIPHENHYDRAMINE. [Concomitant]
     Active Substance: DIPHENHYDRAMINE

REACTIONS (1)
  - Limb injury [Unknown]

NARRATIVE: CASE EVENT DATE: 201605
